FAERS Safety Report 11388855 (Version 1)
Quarter: 2015Q3

REPORT INFORMATION
  Report Type: Spontaneous
  Country: US (occurrence: US)
  Receive Date: 20150811
  Receipt Date: 20150811
  Transmission Date: 20151125
  Serious: Yes (Congenital Anomaly, Other)
  Sender: FDA-Public Use
  Company Number: US-APOTEX-2015AP008106

PATIENT
  Sex: Male

DRUGS (2)
  1. PAXIL CR [Suspect]
     Active Substance: PAROXETINE HYDROCHLORIDE
     Indication: PRODUCT USED FOR UNKNOWN INDICATION
     Dosage: 12.5 MG, UNKNOWN
     Route: 064
  2. PAXIL [Suspect]
     Active Substance: PAROXETINE HYDROCHLORIDE
     Indication: ANXIETY
     Dosage: UNK UNK, UNKNOWN
     Route: 064

REACTIONS (9)
  - Arnold-Chiari malformation [Unknown]
  - Cleft palate [Unknown]
  - Nausea [Unknown]
  - Vomiting [Unknown]
  - Heart disease congenital [Unknown]
  - Pierre Robin syndrome [Unknown]
  - Headache [Unknown]
  - Meningitis aseptic [Unknown]
  - Foetal exposure during pregnancy [Unknown]
